FAERS Safety Report 21724652 (Version 1)
Quarter: 2022Q4

REPORT INFORMATION
  Report Type: Spontaneous
  Country: US (occurrence: US)
  Receive Date: 20221213
  Receipt Date: 20221213
  Transmission Date: 20230113
  Serious: No
  Sender: FDA-Public Use
  Company Number: US-SA-SAC20221209000264

PATIENT
  Age: 32 Year
  Sex: Female
  Weight: 63.502 kg

DRUGS (6)
  1. DUPIXENT [Suspect]
     Active Substance: DUPILUMAB
     Indication: Dermatitis atopic
     Dosage: 300 MG, QOW
     Route: 058
     Dates: start: 202209
  2. CLINDAMYCIN [Concomitant]
     Active Substance: CLINDAMYCIN
  3. CEPHALEXIN [Concomitant]
     Active Substance: CEPHALEXIN
  4. VITAMIN D3 [Concomitant]
     Active Substance: CHOLECALCIFEROL
     Dosage: 125 MCG CAPSULE
  5. CLARITIN [Concomitant]
     Active Substance: LORATADINE
  6. ZINC [Concomitant]
     Active Substance: ZINC

REACTIONS (2)
  - Fear of injection [Not Recovered/Not Resolved]
  - Injection site pain [Not Recovered/Not Resolved]

NARRATIVE: CASE EVENT DATE: 20220901
